FAERS Safety Report 17455498 (Version 1)
Quarter: 2020Q1

REPORT INFORMATION
  Report Type: Spontaneous
  Country: US (occurrence: US)
  Receive Date: 20200212
  Receipt Date: 20200212
  Transmission Date: 20200409
  Serious: Yes (Other)
  Sender: FDA-Public Use
  Company Number: None

PATIENT
  Age: 79 Year
  Sex: Female
  Weight: 70.76 kg

DRUGS (5)
  1. CRESTOR [Suspect]
     Active Substance: ROSUVASTATIN CALCIUM
     Dosage: ?          QUANTITY:1 PILL;?
     Route: 048
     Dates: start: 20190807, end: 201909
  2. ATENOLOL. [Concomitant]
     Active Substance: ATENOLOL
  3. MAGNESIUM [Concomitant]
     Active Substance: MAGNESIUM
  4. COQ10 [Concomitant]
     Active Substance: UBIDECARENONE
  5. WOMENS ONE A DAY [Concomitant]

REACTIONS (6)
  - Myalgia [None]
  - Hunger [None]
  - Pollakiuria [None]
  - Arthralgia [None]
  - Confusional state [None]
  - Asthenia [None]

NARRATIVE: CASE EVENT DATE: 20190909
